FAERS Safety Report 6845832-5 (Version None)
Quarter: 2010Q3

REPORT INFORMATION
  Report Type: 
  Country: None (occurrence: None)
  Receive Date: 20100715
  Receipt Date: 20070929
  Transmission Date: 20110219
  Serious: No
  Sender: FDA-Public Use
  Company Number: US-PFIZER INC-2007072759

PATIENT
  Sex: Female
  Weight: 52.272 kg

DRUGS (9)
  1. CHANTIX [Suspect]
     Indication: SMOKING CESSATION THERAPY
     Route: 048
     Dates: end: 20070825
  2. AMITIZA [Suspect]
     Indication: IRRITABLE BOWEL SYNDROME
     Dates: start: 20070101
  3. ACCUPRIL [Concomitant]
  4. METOPROLOL [Concomitant]
  5. DILTIAZEM [Concomitant]
  6. CRESTOR [Concomitant]
  7. PLAVIX [Concomitant]
  8. HYDROCHLOROTHIAZIDE [Concomitant]
  9. ASPIRIN [Concomitant]

REACTIONS (2)
  - FEELING ABNORMAL [None]
  - NAUSEA [None]
